FAERS Safety Report 8050688-1 (Version None)
Quarter: 2012Q1

REPORT INFORMATION
  Report Type: 
  Country: None (occurrence: None)
  Receive Date: 20120117
  Receipt Date: 20120117
  Transmission Date: 20120608
  Serious: Yes (Hospitalization)
  Sender: FDA-Public Use
  Company Number: None

PATIENT
  Age: 58 Year
  Sex: Female
  Weight: 75.749 kg

DRUGS (1)
  1. GLUCOSAMINE CHONDROITIN PLUS MSM [Suspect]
     Indication: ARTHRALGIA
     Dosage: 3 CAPSULES
     Route: 048
     Dates: start: 20111222, end: 20111223

REACTIONS (1)
  - MYOCARDIAL INFARCTION [None]
